FAERS Safety Report 16580234 (Version 1)
Quarter: 2019Q3

REPORT INFORMATION
  Report Type: Spontaneous
  Country: PT (occurrence: PT)
  Receive Date: 20190716
  Receipt Date: 20190716
  Transmission Date: 20191004
  Serious: Yes (Other)
  Sender: FDA-Public Use
  Company Number: PT-TEVA-2019-PT-1077569

PATIENT
  Age: 66 Year

DRUGS (1)
  1. IMATINIB TEVA [Suspect]
     Active Substance: IMATINIB
     Dosage: 400 MG/DAY
     Route: 048
     Dates: start: 20190613, end: 20190626

REACTIONS (6)
  - Localised oedema [Recovered/Resolved]
  - Periorbital oedema [Recovered/Resolved]
  - Face injury [Recovered/Resolved]
  - Chest injury [Recovered/Resolved]
  - Face oedema [Recovered/Resolved]
  - Macule [Recovered/Resolved]

NARRATIVE: CASE EVENT DATE: 20190624
